FAERS Safety Report 21703543 (Version 1)
Quarter: 2022Q4

REPORT INFORMATION
  Report Type: Other
  Country: GB (occurrence: GB)
  Receive Date: 20221209
  Receipt Date: 20221209
  Transmission Date: 20230113
  Serious: Yes (Hospitalization, Other)
  Sender: FDA-Public Use
  Company Number: GB-ASPEN-GLO2022GB007081

PATIENT

DRUGS (1)
  1. ALLOPURINOL [Suspect]
     Active Substance: ALLOPURINOL
     Indication: Gout
     Dosage: 100 MG, QD
     Route: 048

REACTIONS (5)
  - Syncope [Unknown]
  - Coordination abnormal [Unknown]
  - Balance disorder [Unknown]
  - Malaise [Unknown]
  - Product prescribing error [Unknown]
